FAERS Safety Report 10335798 (Version 3)
Quarter: 2015Q1

REPORT INFORMATION
  Report Type: Spontaneous
  Country: US (occurrence: US)
  Receive Date: 20140723
  Receipt Date: 20150119
  Transmission Date: 20150720
  Serious: No
  Sender: FDA-Public Use
  Company Number: US-UNITED THERAPEUTICS-UTC-048225

PATIENT
  Sex: Female
  Weight: 74.38 kg

DRUGS (4)
  1. TYVASO [Suspect]
     Active Substance: TREPROSTINIL
     Dosage: 18-54 MICROGRAMS, QID
     Dates: start: 20140321
  2. REVATIO [Concomitant]
     Active Substance: SILDENAFIL CITRATE
     Indication: PRODUCT USED FOR UNKNOWN INDICATION
  3. COUMADIN [Concomitant]
     Active Substance: WARFARIN SODIUM
  4. OPSUMIT [Concomitant]
     Active Substance: MACITENTAN
     Indication: PRODUCT USED FOR UNKNOWN INDICATION

REACTIONS (10)
  - Haemoptysis [Unknown]
  - Renal disorder [Unknown]
  - Dysphagia [Unknown]
  - Cerumen impaction [Unknown]
  - Cough [Unknown]
  - Herpes zoster [Unknown]
  - Dry mouth [Unknown]
  - Muscle spasms [Unknown]
  - Hypoacusis [Unknown]
  - Back pain [Unknown]
